FAERS Safety Report 6744211-9 (Version None)
Quarter: 2010Q2

REPORT INFORMATION
  Report Type: 
  Country: None (occurrence: None)
  Receive Date: 20100527
  Receipt Date: 20100519
  Transmission Date: 20101027
  Serious: Yes (Other)
  Sender: FDA-Public Use
  Company Number: US-ASTRAZENECA-2010SE23023

PATIENT
  Age: 722 Month
  Sex: Female

DRUGS (11)
  1. SYMBICORT [Suspect]
     Indication: ASTHMA
     Route: 055
  2. ADVAIR DISKUS 100/50 [Suspect]
     Indication: ASTHMA
     Dosage: 115/21 UG 1 PUFF THREE TIMES PER DAY, HFA-CFC FREE INHALER
     Route: 055
     Dates: start: 20070101
  3. ADVAIR DISKUS 100/50 [Suspect]
     Dosage: 2 PUFFS TWICE PER DAY, MULTIDOSE POWDER INHALER
     Route: 055
     Dates: start: 20100401, end: 20100401
  4. PREDNISONE TAB [Concomitant]
  5. COTRIM [Concomitant]
  6. NEBULIZER [Concomitant]
  7. BUDESONIDE [Concomitant]
  8. IPRATROPIUM BROMIDE [Concomitant]
  9. MONTELUKAST SODIUM [Concomitant]
  10. MULTI-VITAMIN [Concomitant]
  11. ROBITUSSIN DM [Concomitant]

REACTIONS (6)
  - COUGH [None]
  - DRUG ADMINISTRATION ERROR [None]
  - DYSPNOEA [None]
  - GAIT DISTURBANCE [None]
  - INCREASED UPPER AIRWAY SECRETION [None]
  - SPEECH DISORDER [None]
